FAERS Safety Report 9540220 (Version 1)
Quarter: 2013Q3

REPORT INFORMATION
  Report Type: Spontaneous
  Country: US (occurrence: US)
  Receive Date: 20130920
  Receipt Date: 20130920
  Transmission Date: 20140515
  Serious: Yes (Other)
  Sender: FDA-Public Use
  Company Number: US-BAXTER-2013BAX036028

PATIENT
  Age: 2 Year
  Sex: Male

DRUGS (3)
  1. 0.9% SODIUM CHLORIDE INJECTION [Suspect]
     Indication: DIABETIC KETOACIDOSIS
     Dosage: 20 ML/KG
     Route: 040
  2. DEXTROSE [Suspect]
     Indication: DIABETIC KETOACIDOSIS
     Route: 065
  3. INSULIN [Suspect]
     Indication: DIABETIC KETOACIDOSIS
     Route: 065

REACTIONS (2)
  - Brain oedema [Recovered/Resolved with Sequelae]
  - Brain herniation [Recovered/Resolved with Sequelae]
